FAERS Safety Report 18865765 (Version 1)
Quarter: 2021Q1

REPORT INFORMATION
  Report Type: Spontaneous
  Country: US (occurrence: US)
  Receive Date: 20210208
  Receipt Date: 20210208
  Transmission Date: 20210420
  Serious: No
  Sender: FDA-Public Use
  Company Number: US-PFIZER INC-2021076740

PATIENT
  Sex: Male

DRUGS (5)
  1. ALLOPURINOL. [Suspect]
     Active Substance: ALLOPURINOL
     Dosage: UNK
  2. AZTREONAM. [Suspect]
     Active Substance: AZTREONAM
     Dosage: UNK
  3. VANCOMYCIN HCL [Suspect]
     Active Substance: VANCOMYCIN HYDROCHLORIDE
     Dosage: UNK
  4. HALOPERIDOL. [Suspect]
     Active Substance: HALOPERIDOL
     Dosage: UNK
  5. PENICILLIN [BENZYLPENICILLIN] [Suspect]
     Active Substance: PENICILLIN G
     Dosage: UNK

REACTIONS (1)
  - Drug hypersensitivity [Unknown]
